FAERS Safety Report 23195319 (Version 1)
Quarter: 2023Q4

REPORT INFORMATION
  Report Type: Spontaneous
  Country: MA (occurrence: MA)
  Receive Date: 20231117
  Receipt Date: 20231117
  Transmission Date: 20240110
  Serious: Yes (Hospitalization, Other)
  Sender: FDA-Public Use
  Company Number: MA-ALKEM LABORATORIES LIMITED-MA-ALKEM-2023-05678

PATIENT
  Age: 70 Year
  Sex: Female

DRUGS (1)
  1. OLANZAPINE [Suspect]
     Active Substance: OLANZAPINE
     Indication: Depression
     Dosage: 10 MG/DAY
     Route: 065

REACTIONS (1)
  - Pulmonary embolism [Unknown]
